FAERS Safety Report 17587973 (Version 1)
Quarter: 2020Q1

REPORT INFORMATION
  Report Type: Spontaneous
  Country: HU (occurrence: HU)
  Receive Date: 20200326
  Receipt Date: 20200326
  Transmission Date: 20200409
  Serious: No
  Sender: FDA-Public Use
  Company Number: HU-EMD SERONO-E2B_90076009

PATIENT
  Sex: Female

DRUGS (1)
  1. MAVENCLAD [Suspect]
     Active Substance: CLADRIBINE
     Indication: MULTIPLE SCLEROSIS
     Dosage: FIRST YEAR THERAPY.
     Dates: start: 201907

REACTIONS (2)
  - Multiple sclerosis relapse [Recovering/Resolving]
  - Lymphocyte count decreased [Unknown]
